FAERS Safety Report 8800249 (Version 2)
Quarter: 2012Q4

REPORT INFORMATION
  Report Type: 
  Country: CA (occurrence: CA)
  Receive Date: 20120921
  Receipt Date: 20121023
  Transmission Date: 20130627
  Serious: Yes (Hospitalization, Other)
  Sender: FDA-Public Use
  Company Number: CHPA2012CA019802

PATIENT
  Age: 27 Year
  Sex: Male

DRUGS (1)
  1. OTRIVIN [Suspect]
     Indication: UPPER RESPIRATORY TRACT CONGESTION
     Dosage: ONE SPRAY EACH NOSTRIL, Unk
     Route: 045
     Dates: start: 20120903, end: 20120903

REACTIONS (11)
  - Infection [Recovered/Resolved]
  - Haematoma [Recovered/Resolved]
  - Nasal abscess [Recovered/Resolved]
  - Epistaxis [Recovered/Resolved]
  - Nasal oedema [Recovered/Resolved]
  - Pain [Recovered/Resolved]
  - Nasal obstruction [Recovered/Resolved]
  - Swelling face [Recovered/Resolved]
  - Erythema [Unknown]
  - Paranasal sinus haematoma [None]
  - Rhinitis [None]
